FAERS Safety Report 11857712 (Version 1)
Quarter: 2015Q4

REPORT INFORMATION
  Report Type: Spontaneous
  Country: US (occurrence: None)
  Receive Date: 20151221
  Receipt Date: 20151221
  Transmission Date: 20160305
  Serious: Yes (Other)
  Sender: FDA-Public Use
  Company Number: None

PATIENT
  Age: 37 Year
  Sex: Female
  Weight: 54.89 kg

DRUGS (7)
  1. DEPO-PROVERA [Suspect]
     Active Substance: MEDROXYPROGESTERONE ACETATE
     Indication: CONTRACEPTION
     Dosage: Q 3 MONTHS
     Route: 030
  2. VITAMIN C [Concomitant]
     Active Substance: ASCORBIC ACID
  3. FLAX OIL [Concomitant]
  4. NEOCON [Concomitant]
     Active Substance: ETHINYL ESTRADIOL\NORETHINDRONE
  5. MULTIVITAMIN [Concomitant]
     Active Substance: VITAMINS
  6. ADDERALL XR [Concomitant]
     Active Substance: AMPHETAMINE ASPARTATE\AMPHETAMINE SULFATE\DEXTROAMPHETAMINE SACCHARATE\DEXTROAMPHETAMINE SULFATE
  7. VENLAFAXINE XR [Concomitant]
     Active Substance: VENLAFAXINE HYDROCHLORIDE

REACTIONS (14)
  - Depression [None]
  - Affective disorder [None]
  - Drug effect decreased [None]
  - Blood alkaline phosphatase increased [None]
  - Fatigue [None]
  - Night sweats [None]
  - Cognitive disorder [None]
  - Sebaceous hyperplasia [None]
  - Keratosis pilaris [None]
  - Osteoporosis [None]
  - Attention deficit/hyperactivity disorder [None]
  - Hot flush [None]
  - Hypersomnia [None]
  - Rash [None]
